FAERS Safety Report 23813736 (Version 1)
Quarter: 2024Q2

REPORT INFORMATION
  Report Type: Spontaneous
  Country: CA (occurrence: CA)
  Receive Date: 20240503
  Receipt Date: 20240503
  Transmission Date: 20240716
  Serious: Yes (Other)
  Sender: FDA-Public Use
  Company Number: CA-BAYER-2024A060823

PATIENT
  Age: 30 Year
  Sex: Female
  Weight: 68.039 kg

DRUGS (2)
  1. KYLEENA [Suspect]
     Active Substance: LEVONORGESTREL
     Indication: Contraception
     Dosage: 17.5?G/DAY
     Route: 015
  2. KYLEENA [Suspect]
     Active Substance: LEVONORGESTREL
     Indication: Prophylaxis

REACTIONS (5)
  - Ectopic pregnancy with contraceptive device [Recovering/Resolving]
  - Vaginal haemorrhage [Recovering/Resolving]
  - Muscle spasms [Recovering/Resolving]
  - Dysmenorrhoea [Recovering/Resolving]
  - Fallopian tube operation [Recovering/Resolving]
